FAERS Safety Report 9866466 (Version 2)
Quarter: 2014Q1

REPORT INFORMATION
  Report Type: Report from Study
  Country: DE (occurrence: DE)
  Receive Date: 20140204
  Receipt Date: 20140310
  Transmission Date: 20141002
  Serious: Yes (Hospitalization, Disabling, Other)
  Sender: FDA-Public Use
  Company Number: DE-ROCHE-1342741

PATIENT
  Age: 50 Year
  Sex: Female

DRUGS (12)
  1. RITUXIMAB [Suspect]
     Indication: RHEUMATOID ARTHRITIS
     Route: 065
     Dates: start: 20090828
  2. RITUXIMAB [Suspect]
     Route: 065
     Dates: start: 20100319
  3. RITUXIMAB [Suspect]
     Route: 065
     Dates: start: 20100917
  4. RITUXIMAB [Suspect]
     Route: 065
     Dates: start: 20110917
  5. RITUXIMAB [Suspect]
     Route: 065
     Dates: start: 20121017
  6. RITUXIMAB [Suspect]
     Route: 065
     Dates: start: 20121031
  7. HYDROXYCHLOROQUINE [Concomitant]
     Indication: RHEUMATOID ARTHRITIS
     Route: 065
     Dates: start: 20100322, end: 201005
  8. HYDROXYCHLOROQUINE [Concomitant]
     Dosage: EST ON 18-APR-2013
     Route: 065
     Dates: start: 201304
  9. PREDNISOLON [Concomitant]
     Indication: RHEUMATOID ARTHRITIS
     Route: 065
  10. CELEBREX [Concomitant]
     Route: 065
  11. L-THYROXIN [Concomitant]
     Route: 065
  12. ETANERCEPT [Concomitant]
     Indication: RHEUMATOID ARTHRITIS
     Route: 065
     Dates: start: 200903, end: 200908

REACTIONS (5)
  - Sudden hearing loss [Recovered/Resolved with Sequelae]
  - Herpes zoster meningitis [Unknown]
  - Facial paresis [Recovering/Resolving]
  - VIIIth nerve lesion [Not Recovered/Not Resolved]
  - Tinnitus [Unknown]
